FAERS Safety Report 9373860 (Version 1)
Quarter: 2013Q2

REPORT INFORMATION
  Report Type: Report from Study
  Country: GB (occurrence: GB)
  Receive Date: 20130628
  Receipt Date: 20130628
  Transmission Date: 20140414
  Serious: Yes (Hospitalization)
  Sender: FDA-Public Use
  Company Number: GB-ROCHE-1242371

PATIENT
  Age: 69 Year
  Sex: Female
  Weight: 75 kg

DRUGS (2)
  1. RITUXIMAB [Suspect]
     Indication: RHEUMATOID ARTHRITIS
     Dosage: ON 21/DEC/2011, SHE HAD DOSE OF RITUXIMAB.
     Route: 065
     Dates: start: 20080319
  2. METHOTREXATE [Concomitant]

REACTIONS (1)
  - Tendon rupture [Unknown]
